FAERS Safety Report 9045784 (Version 1)
Quarter: 2013Q1

REPORT INFORMATION
  Report Type: Report from Study
  Country: US (occurrence: US)
  Receive Date: 20130201
  Receipt Date: 20130201
  Transmission Date: 20140127
  Serious: No
  Sender: FDA-Public Use
  Company Number: US-ABBOTT-12P-163-1017357-00

PATIENT
  Age: 37 Year
  Sex: Female

DRUGS (11)
  1. HUMIRA [Suspect]
     Indication: CROHN^S DISEASE
     Dates: start: 2011
  2. ALPRAZOLAM [Concomitant]
     Indication: ANXIETY
  3. CALCIUM [Concomitant]
     Indication: PRODUCT USED FOR UNKNOWN INDICATION
     Dosage: 600MG WITH VIT. D 800MEQ
  4. FENOFIBRATE [Concomitant]
     Indication: BLOOD TRIGLYCERIDES INCREASED
  5. CYMBALTA [Concomitant]
     Indication: DEPRESSION
  6. OMEPRAZOLE [Concomitant]
     Indication: GASTROOESOPHAGEAL REFLUX DISEASE
  7. REGLAN [Concomitant]
     Indication: IMPAIRED GASTRIC EMPTYING
  8. VITAMIN C [Concomitant]
     Indication: PRODUCT USED FOR UNKNOWN INDICATION
  9. MORPHINE SULFATE I.R. [Concomitant]
     Indication: PAIN
  10. LAMICTAL [Concomitant]
     Indication: BIPOLAR DISORDER
  11. TOPAMAX [Concomitant]
     Indication: MIGRAINE
     Dosage: AT BEDTIME

REACTIONS (3)
  - Crohn^s disease [Not Recovered/Not Resolved]
  - Arthritis [Not Recovered/Not Resolved]
  - Migraine [Not Recovered/Not Resolved]
